FAERS Safety Report 4719430-3 (Version None)
Quarter: 2005Q3

REPORT INFORMATION
  Report Type: 
  Country: None (occurrence: None)
  Receive Date: 20050721
  Receipt Date: 20050609
  Transmission Date: 20060218
  Serious: Yes (Death, Disabling)
  Sender: FDA-Public Use
  Company Number: PHBS2005JP08406

PATIENT
  Age: 70 Year
  Sex: Female
  Weight: 50 kg

DRUGS (13)
  1. AREDIA [Suspect]
     Indication: BACK PAIN
     Dosage: 30 MG
     Dates: start: 20041122, end: 20041209
  2. VOLTAREN [Suspect]
     Indication: BACK PAIN
     Dosage: 4 DF/DAY
     Route: 054
     Dates: start: 20041116
  3. PENTCILLIN [Suspect]
     Indication: INFECTION
     Dosage: 4 G/D
     Route: 042
     Dates: start: 20041115, end: 20041116
  4. PENTCILLIN [Suspect]
     Dosage: 4 G/DAY
     Route: 042
     Dates: start: 20041201, end: 20041207
  5. FILGRASTIM [Concomitant]
     Route: 042
  6. TOBRACIN [Suspect]
     Dosage: 120 MG/D
     Route: 042
     Dates: start: 20041115, end: 20041116
  7. TOBRACIN [Suspect]
     Dosage: 120 MG/D
     Route: 042
     Dates: start: 20041201, end: 20041207
  8. TIENAM [Suspect]
     Dosage: 1 G/D
     Route: 042
     Dates: start: 20041116, end: 20041122
  9. TIENAM [Suspect]
     Dosage: 1 G/D
     Route: 042
     Dates: start: 20041217, end: 20041221
  10. GRAN [Suspect]
     Dosage: 75 UG/D
     Route: 042
     Dates: start: 20041116, end: 20041122
  11. IMMUNE GLOBULIN INTRAVENOUS (HUMAN) [Suspect]
     Dosage: 5 G/D
     Route: 042
     Dates: start: 20041116, end: 20041118
  12. ORGADRONE [Concomitant]
     Dosage: 3.8 MG/D
     Route: 042
     Dates: start: 20041204, end: 20041207
  13. ZOVIRAX [Concomitant]
     Dosage: 1200 MG/D
     Route: 042
     Dates: start: 20041218, end: 20041221

REACTIONS (14)
  - DEMENTIA [None]
  - DEPRESSED LEVEL OF CONSCIOUSNESS [None]
  - DISORIENTATION [None]
  - EPISTAXIS [None]
  - INTUBATION [None]
  - LEUKOENCEPHALOPATHY [None]
  - LIFE SUPPORT [None]
  - MOUTH HAEMORRHAGE [None]
  - PARKINSONIAN GAIT [None]
  - PULMONARY OEDEMA [None]
  - RESPIRATORY FAILURE [None]
  - SUBDURAL HAEMORRHAGE [None]
  - THROMBOCYTOPENIA [None]
  - TREMOR [None]
